FAERS Safety Report 20195334 (Version 2)
Quarter: 2021Q4

REPORT INFORMATION
  Report Type: Spontaneous
  Country: US (occurrence: US)
  Receive Date: 20211216
  Receipt Date: 20211230
  Transmission Date: 20220303
  Serious: No
  Sender: FDA-Public Use
  Company Number: US-KARYOPHARM-2021KPT001525

PATIENT

DRUGS (10)
  1. XPOVIO [Suspect]
     Active Substance: SELINEXOR
     Indication: Plasma cell myeloma
     Dosage: 60 MG, WEEKLY
     Route: 048
     Dates: start: 20211129
  2. KEFLEX [Concomitant]
     Active Substance: CEPHALEXIN
  3. CHOLESTYRAMINE [Concomitant]
     Active Substance: CHOLESTYRAMINE
  4. DECADRON [Concomitant]
     Active Substance: DEXAMETHASONE
  5. NIFEDIPINE [Concomitant]
     Active Substance: NIFEDIPINE
  6. OLANZAPINE [Concomitant]
     Active Substance: OLANZAPINE
  7. VALACYCLOVIR [Concomitant]
     Active Substance: VALACYCLOVIR HYDROCHLORIDE
  8. VELCADE [Concomitant]
     Active Substance: BORTEZOMIB
  9. XGEVA [Concomitant]
     Active Substance: DENOSUMAB
  10. ZOFRAN [Concomitant]
     Active Substance: ONDANSETRON HYDROCHLORIDE

REACTIONS (2)
  - Feeling abnormal [Unknown]
  - Fatigue [Not Recovered/Not Resolved]

NARRATIVE: CASE EVENT DATE: 20211201
